FAERS Safety Report 6489690-X (Version None)
Quarter: 2009Q4

REPORT INFORMATION
  Report Type: 
  Country: None (occurrence: None)
  Receive Date: 20091207
  Receipt Date: 20091130
  Transmission Date: 20100525
  Serious: Yes (Hospitalization)
  Sender: FDA-Public Use
  Company Number: S08-USA-00876-01

PATIENT
  Sex: Female

DRUGS (2)
  1. THYROID TAB [Suspect]
     Indication: HYPOTHYROIDISM
     Dosage: 60 MG, 1 IN 1 D, ORAL
     Route: 048
     Dates: start: 19650101, end: 19930101
  2. ORTHO-NOVUM [Concomitant]

REACTIONS (3)
  - PNEUMONIA [None]
  - PRODUCT QUALITY ISSUE [None]
  - RASH [None]
